FAERS Safety Report 5772948-7 (Version None)
Quarter: 2008Q2

REPORT INFORMATION
  Report Type: 
  Country: None (occurrence: None)
  Receive Date: 20080613
  Receipt Date: 20080603
  Transmission Date: 20081010
  Serious: Yes (Other)
  Sender: FDA-Public Use
  Company Number: US-PFIZER INC-2008047494

PATIENT
  Sex: Female

DRUGS (2)
  1. AZITHROMYCIN [Suspect]
     Route: 048
  2. AZITHROMYCIN [Suspect]
     Dosage: TEXT:1 TABLETS
     Route: 048
     Dates: start: 20080514, end: 20080515

REACTIONS (2)
  - EYE SWELLING [None]
  - SWELLING FACE [None]
